FAERS Safety Report 11266030 (Version 1)
Quarter: 2015Q2

REPORT INFORMATION
  Report Type: Spontaneous
  Country: US (occurrence: None)
  Receive Date: 20150625
  Receipt Date: 20150625
  Transmission Date: 20150821
  Serious: Yes (Hospitalization)
  Sender: FDA-Public Use
  Company Number: A-US2015-113498

PATIENT
  Age: 89 Year
  Sex: Female

DRUGS (12)
  1. DECARA (LOSARTAN POTASSIUM) [Concomitant]
  2. METRONIDAZOLE (METRONIDAZOLE SODIUM) [Concomitant]
  3. SULFAMETHOXAZOLE (SULFAMETHOXAZOLE) [Concomitant]
  4. BUDESONIDE (BUDESONIDE) [Concomitant]
     Active Substance: BUDESONIDE
  5. TRADJENTA (LINAGLIPTIN) [Concomitant]
  6. ALENDRONATE (ALENDRONATE SODIUM) [Concomitant]
     Active Substance: ALENDRONATE SODIUM
  7. CARVEDILOL (CARVEDILOL) [Concomitant]
     Active Substance: CARVEDILOL
  8. OPSUMIT [Suspect]
     Active Substance: MACITENTAN
     Indication: PULMONARY ARTERIAL HYPERTENSION
     Route: 048
     Dates: start: 20140709
  9. NYSTATIN (NYSTATIN) [Concomitant]
     Active Substance: NYSTATIN
  10. CARTEOLOL (CARTEOLOL) [Concomitant]
  11. CEFDINIR (CEFDINIR) [Concomitant]
     Active Substance: CEFDINIR
  12. MONTELUKAST [Concomitant]
     Active Substance: MONTELUKAST SODIUM

REACTIONS (1)
  - Dyspnoea [None]

NARRATIVE: CASE EVENT DATE: 20150212
